FAERS Safety Report 4550803-8 (Version None)
Quarter: 2004Q4

REPORT INFORMATION
  Report Type: 
  Country: None (occurrence: None)
  Receive Date: 20041217
  Receipt Date: 20041004
  Transmission Date: 20050328
  Serious: No
  Sender: FDA-Public Use
  Company Number: 2004-BP-09290BP(0)

PATIENT
  Age: 59 Year
  Sex: Male

DRUGS (18)
  1. SPIRIVA [Suspect]
     Indication: CHRONIC OBSTRUCTIVE AIRWAYS DISEASE
     Dosage: 18 MCG (18 MCG), IH
     Route: 055
     Dates: start: 20040701
  2. FORADIL (FORMOTEROL FUMURATE) [Concomitant]
  3. MAXAIR [Concomitant]
  4. THEOPHYLLINE [Concomitant]
  5. TOPROL-XL [Concomitant]
  6. SINGULAIR (MONTELUKAST) [Concomitant]
  7. QUININE (QUININE) [Concomitant]
  8. LASIX [Concomitant]
  9. ALDACTOSE [Concomitant]
  10. PRAVACHOL [Concomitant]
  11. GLUCOPHAGE [Concomitant]
  12. ISOSORBIDE MONONITRATE [Concomitant]
  13. NITROQUITE [Concomitant]
  14. PROBENICID/ COLECHINE [Concomitant]
  15. ALBUTEROL [Concomitant]
  16. BUPROPRION SA [Concomitant]
  17. SPIRONOLACTONE [Concomitant]
  18. METFORMIN HCL [Concomitant]

REACTIONS (1)
  - DYSGEUSIA [None]
